FAERS Safety Report 12497387 (Version 1)
Quarter: 2016Q2

REPORT INFORMATION
  Report Type: Spontaneous
  Country: US (occurrence: US)
  Receive Date: 20160624
  Receipt Date: 20160624
  Transmission Date: 20160815
  Serious: Yes (Hospitalization)
  Sender: FDA-Public Use
  Company Number: US-MYLANLABS-2016M1025950

PATIENT

DRUGS (1)
  1. KETAMINE [Suspect]
     Active Substance: KETAMINE
     Indication: PRODUCT USED FOR UNKNOWN INDICATION
     Dosage: 3-5 TIMES/WEEK OVER THE PAST 2 YEARS
     Route: 055

REACTIONS (3)
  - Dysuria [Unknown]
  - Biliary dilatation [Unknown]
  - Drug abuse [Unknown]
